FAERS Safety Report 4621825-3 (Version None)
Quarter: 2005Q1

REPORT INFORMATION
  Report Type: 
  Country: None (occurrence: None)
  Receive Date: 20050329
  Receipt Date: 20050323
  Transmission Date: 20050727
  Serious: Yes (Hospitalization)
  Sender: FDA-Public Use
  Company Number: 200512675GDDC

PATIENT
  Age: 52 Year
  Sex: Male

DRUGS (1)
  1. KETEK [Suspect]
     Dosage: DOSE: UNK
     Dates: start: 20050202, end: 20050206

REACTIONS (4)
  - GASTRITIS [None]
  - JAUNDICE [None]
  - LIVER DISORDER [None]
  - PULMONARY CONGESTION [None]
